FAERS Safety Report 5833099-6 (Version None)
Quarter: 2008Q3

REPORT INFORMATION
  Report Type: 
  Country: None (occurrence: None)
  Receive Date: 20080805
  Receipt Date: 20080724
  Transmission Date: 20090109
  Serious: Yes (Hospitalization, Disabling)
  Sender: FDA-Public Use
  Company Number: FR-ASTRAZENECA-2008CG01126

PATIENT
  Age: 23579 Day
  Sex: Male

DRUGS (3)
  1. XYLOCAINE [Suspect]
     Indication: PAIN
     Route: 014
     Dates: start: 20080526, end: 20080526
  2. HYDROCORTANCYL [Suspect]
     Indication: PAIN
     Route: 014
     Dates: start: 20080526, end: 20080526
  3. IOPAMIDOL [Suspect]
     Indication: PAIN
     Dates: start: 20080526, end: 20080526

REACTIONS (1)
  - PARAPLEGIA [None]
